FAERS Safety Report 5258264-0 (Version None)
Quarter: 2007Q1

REPORT INFORMATION
  Report Type: 
  Country: None (occurrence: None)
  Receive Date: 20070302
  Receipt Date: 20070207
  Transmission Date: 20070707
  Serious: Yes (Other)
  Sender: FDA-Public Use
  Company Number: 6022415

PATIENT
  Age: 34 Year
  Sex: Female

DRUGS (4)
  1. LOVAN (60 MG) (FLUOXETINE HYDROCHLORIDE) [Suspect]
     Indication: DEPRESSION
     Dosage: 60 MG (60 MG, 1 IN 1 D)
  2. PHENERGAN [Concomitant]
  3. ZOLPIDEM TARTRATE [Concomitant]
  4. EDRONAX (REBOXETINE) [Concomitant]

REACTIONS (3)
  - AGITATION NEONATAL [None]
  - DRUG EXPOSURE DURING PREGNANCY [None]
  - FOETAL GROWTH RETARDATION [None]
